FAERS Safety Report 10537605 (Version 2)
Quarter: 2014Q4

REPORT INFORMATION
  Report Type: Spontaneous
  Country: DE (occurrence: DE)
  Receive Date: 20141023
  Receipt Date: 20141023
  Transmission Date: 20150529
  Serious: Yes (Hospitalization)
  Sender: FDA-Public Use
  Company Number: DE-JNJFOC-20140924397

PATIENT
  Age: 37 Year
  Sex: Male
  Weight: 77 kg

DRUGS (1)
  1. REMICADE [Suspect]
     Active Substance: INFLIXIMAB
     Indication: CROHN^S DISEASE
     Route: 042
     Dates: start: 20130319, end: 20140820

REACTIONS (10)
  - Myalgia [Not Recovered/Not Resolved]
  - C-reactive protein increased [Unknown]
  - Osteoarthritis [Unknown]
  - Osteochondrosis [Unknown]
  - Alopecia totalis [Unknown]
  - Stress [Unknown]
  - Osteoarthritis [Unknown]
  - Muscle oedema [Unknown]
  - Asthenia [Unknown]
  - Immunoglobulins increased [Unknown]

NARRATIVE: CASE EVENT DATE: 201310
